FAERS Safety Report 5322782-7 (Version None)
Quarter: 2007Q2

REPORT INFORMATION
  Report Type: 
  Country: None (occurrence: None)
  Receive Date: 20070511
  Receipt Date: 20070507
  Transmission Date: 20071010
  Serious: Yes (Other)
  Sender: FDA-Public Use
  Company Number: DE-ROXANE LABORATORIES, INC-2007-BP-06196RO

PATIENT
  Age: 32 Year
  Sex: Female
  Weight: 60 kg

DRUGS (1)
  1. HYDROMORPHONE HCL [Suspect]
     Indication: ANALGESIC EFFECT
     Dosage: 32 MG BID + 2-6 MG QID
     Route: 048

REACTIONS (6)
  - AMENORRHOEA [None]
  - ASTHENIA [None]
  - DIZZINESS [None]
  - FATIGUE [None]
  - ORTHOSTATIC HYPOTENSION [None]
  - SECONDARY ADRENOCORTICAL INSUFFICIENCY [None]
